FAERS Safety Report 8613594-7 (Version None)
Quarter: 2012Q3

REPORT INFORMATION
  Report Type: 
  Country: None (occurrence: None)
  Receive Date: 20120823
  Receipt Date: 20120808
  Transmission Date: 20120928
  Serious: Yes (Other)
  Sender: FDA-Public Use
  Company Number: JP-009507513-2012SP036754

PATIENT

DRUGS (7)
  1. PEGINTERFERON ALFA-2B [Suspect]
     Dosage: 1.05 ?G/KG, QW
     Route: 058
     Dates: start: 20120605
  2. TELAVIC [Suspect]
     Indication: HEPATITIS C
     Dosage: 2250 MG, QD
     Route: 048
     Dates: start: 20120424, end: 20120716
  3. PEGINTERFERON ALFA-2B [Suspect]
     Dosage: 1.2 ?G/KG, QW
     Route: 058
     Dates: start: 20120515, end: 20120604
  4. REBETOL [Suspect]
     Indication: HEPATITIS C
     Dosage: 800 MG, QD
     Route: 048
     Dates: start: 20120424, end: 20120528
  5. REBETOL [Suspect]
     Dosage: 400 UNK, UNK
     Route: 048
     Dates: start: 20120626
  6. PEGINTERFERON ALFA-2B [Suspect]
     Indication: HEPATITIS C
     Dosage: 1.5 ?G/KG, QW
     Route: 058
     Dates: start: 20120424, end: 20120514
  7. REBETOL [Suspect]
     Dosage: 600 MG, QD
     Route: 048
     Dates: start: 20120529, end: 20120625

REACTIONS (4)
  - HYPERURICAEMIA [None]
  - NEUTROPHIL COUNT DECREASED [None]
  - ANAEMIA [None]
  - RASH [None]
